FAERS Safety Report 5248274-1 (Version None)
Quarter: 2007Q1

REPORT INFORMATION
  Report Type: 
  Country: None (occurrence: None)
  Receive Date: 20070227
  Receipt Date: 20061031
  Transmission Date: 20070707
  Serious: No
  Sender: FDA-Public Use
  Company Number: US-BRISTOL-MYERS SQUIBB COMPANY-13562319

PATIENT
  Age: 58 Year
  Sex: Male
  Weight: 125 kg

DRUGS (4)
  1. GLUCOPHAGE [Suspect]
     Indication: DIABETES MELLITUS
     Dosage: TOOK GLUCOPHAGE FOR 10 YEARS TOTAL BUT ONLY 5YRS AT PRESENT DOSE. WAS STOPPED FOR A TIME.
  2. ACTOS [Concomitant]
  3. AMARYL [Concomitant]
  4. ACCUPRIL [Concomitant]

REACTIONS (2)
  - ABDOMINAL DISTENSION [None]
  - DIARRHOEA [None]
